FAERS Safety Report 7880639-1 (Version None)
Quarter: 2011Q4

REPORT INFORMATION
  Report Type: 
  Country: None (occurrence: None)
  Receive Date: 20111101
  Receipt Date: 20111027
  Transmission Date: 20120403
  Serious: Yes (Other)
  Sender: FDA-Public Use
  Company Number: US-BRISTOL-MYERS SQUIBB COMPANY-16179806

PATIENT
  Age: 46 Year
  Sex: Female

DRUGS (1)
  1. ABILIFY [Suspect]
     Indication: SHARED PSYCHOTIC DISORDER
     Dosage: INITIALLY GIVEN 2 MG THEN INCREASED TO 5MG
     Route: 048
     Dates: start: 20110929

REACTIONS (1)
  - THINKING ABNORMAL [None]
